FAERS Safety Report 7794976-2 (Version None)
Quarter: 2011Q4

REPORT INFORMATION
  Report Type: 
  Country: None (occurrence: None)
  Receive Date: 20111004
  Receipt Date: 20110929
  Transmission Date: 20120403
  Serious: Yes (Life-Threatening, Hospitalization)
  Sender: FDA-Public Use
  Company Number: PHHY2011TZ86808

PATIENT
  Sex: Female
  Weight: 58 kg

DRUGS (4)
  1. ACETAMINOPHEN [Concomitant]
     Dosage: UNK UKN, UNK
     Dates: start: 20110919
  2. ARTEMETHER,BENFLUMETOL [Suspect]
     Indication: MALARIA
     Dosage: 4 DF, BID
     Route: 048
     Dates: start: 20110919
  3. CLOXACILLIN SODIUM [Concomitant]
     Indication: UPPER RESPIRATORY TRACT INFECTION
     Dosage: 500 MG, UNK
     Route: 048
     Dates: start: 20110917, end: 20110920
  4. DICLOFENAC [Concomitant]
     Indication: PAIN
     Dosage: 500 MG, UNK
     Route: 048
     Dates: start: 20110917, end: 20110919

REACTIONS (13)
  - OEDEMA PERIPHERAL [None]
  - PRURITUS [None]
  - SNEEZING [None]
  - ANAPHYLACTIC REACTION [None]
  - CHEST DISCOMFORT [None]
  - EYELID OEDEMA [None]
  - SWELLING FACE [None]
  - LACRIMATION INCREASED [None]
  - SKIN DISCOLOURATION [None]
  - OCULAR HYPERAEMIA [None]
  - DYSPNOEA [None]
  - LIP SWELLING [None]
  - RASH GENERALISED [None]
